FAERS Safety Report 4371714-7 (Version None)
Quarter: 2004Q2

REPORT INFORMATION
  Report Type: 
  Country: None (occurrence: None)
  Receive Date: 20040604
  Receipt Date: 20040604
  Transmission Date: 20050107
  Serious: Yes (Death)
  Sender: FDA-Public Use
  Company Number: None

PATIENT
  Sex: Male

DRUGS (36)
  1. IRESSA [Suspect]
     Indication: TONGUE NEOPLASM MALIGNANT STAGE UNSPECIFIED
     Dosage: 250 MG PER GI QD
     Dates: start: 20031218
  2. IRESSA [Suspect]
     Indication: TONGUE NEOPLASM MALIGNANT STAGE UNSPECIFIED
     Dosage: 250 MG PER GI QD
     Dates: start: 20040122
  3. DOCUSATE NA [Concomitant]
  4. FENTANYL [Concomitant]
  5. FLUXOETINE HCL [Concomitant]
  6. FUROSEMIDE [Concomitant]
  7. AMIODARONE HCL [Concomitant]
  8. BUPROPION HCL [Concomitant]
  9. CLINDAMYCIN HCL [Concomitant]
  10. CODEINE [Concomitant]
  11. GLIPIZIDE [Concomitant]
  12. GUAIFENESIN [Concomitant]
  13. HYDROXYPROPYL METH CELL OPH [Concomitant]
  14. INDOMETHACIN [Concomitant]
  15. KERLIX [Concomitant]
  16. KLING [Concomitant]
  17. LEVOTHYROXINE SODIUM [Concomitant]
  18. LIDOCAINE 5 %` [Concomitant]
  19. LISINOPRIL [Concomitant]
  20. NAPROXEN [Concomitant]
  21. NITROGLYCERIN [Concomitant]
  22. ONDANSETRON [Concomitant]
  23. OXYCODONE [Concomitant]
  24. PEARLMANS SUSP [Concomitant]
  25. PILOCARPINE HCL [Concomitant]
  26. PRECISION Q.I.D. GLUCOSE TEST STRIP [Concomitant]
  27. PROBALANCE LIQUID VANILLA [Concomitant]
  28. PROCHLORPERAZINE MALEATE [Concomitant]
  29. SCOPOLAMINE [Concomitant]
  30. SENNA [Concomitant]
  31. SIMVASTATIN [Concomitant]
  32. SODIUM CHLORIDE INJ [Concomitant]
  33. SUCTION KIT [Concomitant]
  34. TUBE FEEDING SET GRAVITY ROSS [Concomitant]
  35. GAUZE PAD [Concomitant]
  36. IRRIGATING SYRINGE CATHETER [Concomitant]

REACTIONS (2)
  - NEOPLASM RECURRENCE [None]
  - TONGUE NEOPLASM MALIGNANT STAGE UNSPECIFIED [None]
